FAERS Safety Report 22074469 (Version 1)
Quarter: 2023Q1

REPORT INFORMATION
  Report Type: Spontaneous
  Country: US (occurrence: None)
  Receive Date: 20230308
  Receipt Date: 20230308
  Transmission Date: 20230418
  Serious: Yes (Life-Threatening, Disabling)
  Sender: FDA-Public Use
  Company Number: None

PATIENT
  Age: 25 Year
  Sex: Female
  Weight: 58.5 kg

DRUGS (8)
  1. DESVENLAFAXINE ER [Suspect]
     Active Substance: DESVENLAFAXINE SUCCINATE
     Indication: Major depression
     Dosage: OTHER QUANTITY : 30 TABLET(S);?
     Route: 048
     Dates: start: 20220429
  2. PRISTIQ EXTENDED-RELEASE [Concomitant]
     Active Substance: DESVENLAFAXINE SUCCINATE
  3. AMPHETAMINE-DEXTROAMPHETAMINE EXTEDNED RELEASE [Concomitant]
  4. CLONAZEPAM [Concomitant]
     Active Substance: CLONAZEPAM
  5. JOLESSA [Concomitant]
     Active Substance: ETHINYL ESTRADIOL\LEVONORGESTREL
  6. TRETINOIN [Concomitant]
     Active Substance: TRETINOIN
  7. SUNSCREEN NOS [Concomitant]
     Active Substance: UNSPECIFIED INGREDIENT
  8. MIRTAZAPINE [Concomitant]
     Active Substance: MIRTAZAPINE

REACTIONS (7)
  - Suicidal behaviour [None]
  - Self-injurious ideation [None]
  - Near death experience [None]
  - Product dispensing error [None]
  - Wrong product administered [None]
  - Skin laceration [None]
  - Product substitution issue [None]

NARRATIVE: CASE EVENT DATE: 20220429
